FAERS Safety Report 5722212-7 (Version None)
Quarter: 2008Q2

REPORT INFORMATION
  Report Type: 
  Country: None (occurrence: None)
  Receive Date: 20080425
  Receipt Date: 20080411
  Transmission Date: 20081010
  Serious: Yes (Death)
  Sender: FDA-Public Use
  Company Number: 169

PATIENT
  Sex: Male
  Weight: 71.2147 kg

DRUGS (14)
  1. FAZACLO ODT [Suspect]
     Indication: DEPRESSION
     Dosage: 50 MG PO DAILY
     Dates: start: 20070926, end: 20071022
  2. LEXAPRO [Concomitant]
  3. GABAPENTIN [Concomitant]
  4. KEPPRA [Concomitant]
  5. OMEPRAZOLE [Concomitant]
  6. NAMENDA [Concomitant]
  7. RANITIDINE [Concomitant]
  8. ACTONEL [Concomitant]
  9. LEVOTHYROXINE SODIUM [Concomitant]
  10. NALTREXONE HYDROCHLORIDE [Concomitant]
  11. MIRTAZAPINE [Concomitant]
  12. SEROQUEL [Concomitant]
  13. DEPAKOTE [Concomitant]
  14. ROZEREM [Concomitant]

REACTIONS (2)
  - CHOKING [None]
  - TRACHEAL OBSTRUCTION [None]
